FAERS Safety Report 7418263-7 (Version None)
Quarter: 2011Q2

REPORT INFORMATION
  Report Type: 
  Country: None (occurrence: None)
  Receive Date: 20110415
  Receipt Date: 20110408
  Transmission Date: 20111010
  Serious: Yes (Hospitalization)
  Sender: FDA-Public Use
  Company Number: US-US-EMD SERONO, INC.-7034629

PATIENT
  Sex: Female

DRUGS (2)
  1. REBIF [Suspect]
     Indication: MULTIPLE SCLEROSIS
     Route: 058
     Dates: start: 20100805
  2. INHALER [Concomitant]
     Indication: ASTHMA

REACTIONS (5)
  - BLOOD URINE PRESENT [None]
  - OXYGEN SATURATION ABNORMAL [None]
  - BLOOD COUNT ABNORMAL [None]
  - HAEMATOCHEZIA [None]
  - ABDOMINAL PAIN UPPER [None]
